FAERS Safety Report 5951061-X (Version None)
Quarter: 2008Q4

REPORT INFORMATION
  Report Type: 
  Country: None (occurrence: None)
  Receive Date: 20081112
  Receipt Date: 20081112
  Transmission Date: 20090506
  Serious: Yes (Other)
  Sender: FDA-Public Use
  Company Number: None

PATIENT
  Sex: Male
  Weight: 97.0698 kg

DRUGS (2)
  1. ZITHROMAX [Suspect]
     Dosage: 250MG ONCE DAILY PO
     Route: 048
     Dates: start: 20081002, end: 20081007
  2. MUCINEX [Concomitant]

REACTIONS (4)
  - APHONIA [None]
  - DYSPHONIA [None]
  - IMPAIRED WORK ABILITY [None]
  - NECK PAIN [None]
